FAERS Safety Report 24294259 (Version 2)
Quarter: 2025Q3

REPORT INFORMATION
  Report Type: Spontaneous
  Country: US (occurrence: US)
  Receive Date: 20240906
  Receipt Date: 20250905
  Transmission Date: 20251020
  Serious: No
  Sender: DOMPE FARMACEUTICI
  Company Number: US-FARMAPROD-202406-2239

PATIENT
  Age: 65 Year
  Sex: Female

DRUGS (7)
  1. OXERVATE [Suspect]
     Active Substance: CENEGERMIN-BKBJ
     Indication: Neurotrophic keratopathy
     Route: 047
     Dates: start: 20240603, end: 20240723
  2. OXERVATE [Suspect]
     Active Substance: CENEGERMIN-BKBJ
     Indication: Neurotrophic keratopathy
  3. OXERVATE [Suspect]
     Active Substance: CENEGERMIN-BKBJ
     Route: 047
     Dates: start: 20240724, end: 20240918
  4. OXERVATE [Suspect]
     Active Substance: CENEGERMIN-BKBJ
     Route: 047
     Dates: start: 20241114, end: 20250102
  5. OXERVATE [Suspect]
     Active Substance: CENEGERMIN-BKBJ
  6. OXERVATE [Suspect]
     Active Substance: CENEGERMIN-BKBJ
     Dates: start: 20250103
  7. OXERVATE [Suspect]
     Active Substance: CENEGERMIN-BKBJ
     Dates: start: 20250103

REACTIONS (12)
  - Eye irritation [Unknown]
  - Eye pruritus [Unknown]
  - Vision blurred [Unknown]
  - Asthenopia [Not Recovered/Not Resolved]
  - Dry eye [Not Recovered/Not Resolved]
  - Photophobia [Unknown]
  - Headache [Unknown]
  - Eye pain [Not Recovered/Not Resolved]
  - Eye swelling [Recovered/Resolved]
  - Fall [Unknown]
  - Malaise [Unknown]
  - Eye irritation [Recovered/Resolved]

NARRATIVE: CASE EVENT DATE: 20241121
